FAERS Safety Report 6157775-3 (Version None)
Quarter: 2009Q2

REPORT INFORMATION
  Report Type: 
  Country: None (occurrence: None)
  Receive Date: 20090416
  Receipt Date: 20090227
  Transmission Date: 20091009
  Serious: Yes (Other)
  Sender: FDA-Public Use
  Company Number: FR-GILEAD-E2B_00000300

PATIENT

DRUGS (2)
  1. HEPSERA [Suspect]
     Indication: HEPATITIS B
     Dosage: 10MG PER DAY
  2. LAMIVUDINE [Concomitant]
     Indication: HEPATITIS B
     Dosage: 100MG PER DAY

REACTIONS (1)
  - ALANINE AMINOTRANSFERASE INCREASED [None]
